FAERS Safety Report 20080411 (Version 2)
Quarter: 2021Q4

REPORT INFORMATION
  Report Type: Report from Study
  Country: US (occurrence: US)
  Receive Date: 20211117
  Receipt Date: 20211228
  Transmission Date: 20220303
  Serious: No
  Sender: FDA-Public Use
  Company Number: US-NOVARTISTESTPH-NVSC2019US104567

PATIENT
  Age: 55 Year
  Sex: Male

DRUGS (2)
  1. LUTATHERA [Suspect]
     Active Substance: LUTETIUM OXODOTREOTIDE LU-177
     Indication: Neuroendocrine tumour
     Dosage: UNK
     Route: 065
  2. ZOFRAN [Suspect]
     Active Substance: ONDANSETRON HYDROCHLORIDE
     Indication: Nausea
     Dosage: AS NEEDED
     Route: 048

REACTIONS (8)
  - Fatigue [Unknown]
  - Laboratory test abnormal [Unknown]
  - Periarthritis [Unknown]
  - Oxygenation index [Unknown]
  - Dry skin [Unknown]
  - Emphysema [Unknown]
  - Subcutaneous abscess [Unknown]
  - Liver disorder [Unknown]

NARRATIVE: CASE EVENT DATE: 20190201
